FAERS Safety Report 8315196-9 (Version None)
Quarter: 2012Q2

REPORT INFORMATION
  Report Type: 
  Country: None (occurrence: None)
  Receive Date: 20120426
  Receipt Date: 20120307
  Transmission Date: 20120825
  Serious: Yes (Hospitalization)
  Sender: FDA-Public Use
  Company Number: DE-GLAXOSMITHKLINE-D0074765A

PATIENT
  Sex: Male

DRUGS (7)
  1. REQUIP [Suspect]
     Indication: PARKINSON'S DISEASE
     Dosage: 14MG PER DAY
     Route: 048
     Dates: start: 20111001
  2. METFORMIN HCL [Concomitant]
     Dosage: 500MG PER DAY
     Route: 048
  3. ALLOPURINOL [Concomitant]
     Route: 048
  4. FLECAINIDE ACETATE [Concomitant]
     Route: 048
  5. BISOPROLOL FUMARATE [Concomitant]
     Dosage: 1.25MG PER DAY
     Route: 048
  6. SPIRONOLACTONE [Concomitant]
     Dosage: 50MG PER DAY
     Route: 048
  7. HYDROCHLOROTHIAZIDE [Concomitant]
     Route: 048

REACTIONS (6)
  - DISTURBANCE IN ATTENTION [None]
  - SOMNOLENCE [None]
  - ROAD TRAFFIC ACCIDENT [None]
  - SUDDEN ONSET OF SLEEP [None]
  - HYPNAGOGIC HALLUCINATION [None]
  - OVERDOSE [None]
